APPROVED DRUG PRODUCT: VECURONIUM BROMIDE
Active Ingredient: VECURONIUM BROMIDE
Strength: 10MG/VIAL
Dosage Form/Route: INJECTABLE;INJECTION
Application: A206670 | Product #001 | TE Code: AP
Applicant: EUGIA PHARMA SPECIALITIES LTD
Approved: Dec 20, 2018 | RLD: No | RS: No | Type: RX